FAERS Safety Report 7084109-2 (Version None)
Quarter: 2010Q4

REPORT INFORMATION
  Report Type: 
  Country: None (occurrence: None)
  Receive Date: 20101104
  Receipt Date: 20101020
  Transmission Date: 20110411
  Serious: Yes (Other)
  Sender: FDA-Public Use
  Company Number: GB-AMGEN-GBRSP2010000929

PATIENT

DRUGS (7)
  1. ENBREL [Suspect]
     Dosage: 50 MG (DOSAGE INTERVAL UNSPECIFIED)
  2. CODEINE PHOSPHATE/PARACETAMOL [Concomitant]
     Dosage: UNKNOWN
  3. CORTICOSTEROID NOS [Concomitant]
     Dosage: UNKNOWN
  4. ALENDRONIC ACID [Concomitant]
     Dosage: UNKNOWN
  5. HYDROXYCHLOROQUINE [Concomitant]
     Dosage: UNKNOWN
  6. ADCAL D3 [Concomitant]
     Dosage: UNKNOWN
  7. LATANOPROST [Concomitant]
     Dosage: UNKNOWN

REACTIONS (1)
  - OEDEMA PERIPHERAL [None]
